FAERS Safety Report 6822197-6 (Version None)
Quarter: 2010Q3

REPORT INFORMATION
  Report Type: 
  Country: None (occurrence: None)
  Receive Date: 20100707
  Receipt Date: 20100707
  Transmission Date: 20110219
  Serious: Yes (Hospitalization)
  Sender: FDA-Public Use
  Company Number: None

PATIENT
  Sex: Male
  Weight: 90.3 kg

DRUGS (1)
  1. BACTRIM DS [Suspect]
     Indication: CELLULITIS
     Dosage: 1 TABLET BID PO
     Route: 048
     Dates: start: 20100603, end: 20100701

REACTIONS (5)
  - DEHYDRATION [None]
  - FATIGUE [None]
  - HYPERKALAEMIA [None]
  - RENAL FAILURE ACUTE [None]
  - TUBULOINTERSTITIAL NEPHRITIS [None]
